FAERS Safety Report 26016222 (Version 1)
Quarter: 2025Q4

REPORT INFORMATION
  Report Type: Spontaneous
  Country: EU (occurrence: EU)
  Receive Date: 20251110
  Receipt Date: 20251110
  Transmission Date: 20260118
  Serious: Yes (Hospitalization)
  Sender: AMGEN
  Company Number: EU-AMGEN-ROUSP2025219370

PATIENT
  Age: 66 Year
  Sex: Male

DRUGS (1)
  1. PROLIA [Suspect]
     Active Substance: DENOSUMAB
     Indication: Osteoporosis
     Dosage: 1 DOSAGE FORM, Q6MO
     Route: 065

REACTIONS (3)
  - Gallbladder disorder [Recovered/Resolved]
  - Musculoskeletal disorder [Unknown]
  - Joint swelling [Unknown]
